APPROVED DRUG PRODUCT: IBUPROFEN
Active Ingredient: IBUPROFEN
Strength: 200MG
Dosage Form/Route: TABLET;ORAL
Application: A072901 | Product #001
Applicant: ANI PHARMACEUTICALS INC
Approved: Dec 19, 1991 | RLD: No | RS: No | Type: DISCN